FAERS Safety Report 17020109 (Version 1)
Quarter: 2019Q4

REPORT INFORMATION
  Report Type: Spontaneous
  Country: US (occurrence: US)
  Receive Date: 20191005
  Receipt Date: 20191005
  Transmission Date: 20200122
  Serious: Yes (Hospitalization)
  Sender: FDA-Public Use
  Company Number: None

PATIENT
  Age: 76 Year
  Sex: Male
  Weight: 71.2 kg

DRUGS (2)
  1. CASODEX [Suspect]
     Active Substance: BICALUTAMIDE
     Dates: start: 20190408, end: 20190926
  2. LEUPROLIDE ACETATE. [Suspect]
     Active Substance: LEUPROLIDE ACETATE
     Dates: start: 20190408, end: 20190708

REACTIONS (5)
  - Fall [None]
  - Cervical spinal stenosis [None]
  - Lumbar spinal stenosis [None]
  - Cervical vertebral fracture [None]
  - Spinal cord oedema [None]

NARRATIVE: CASE EVENT DATE: 20190926
